FAERS Safety Report 9899179 (Version 1)
Quarter: 2014Q1

REPORT INFORMATION
  Report Type: Spontaneous
  Country: GB (occurrence: GB)
  Receive Date: 20140214
  Receipt Date: 20140214
  Transmission Date: 20141002
  Serious: Yes (Other)
  Sender: FDA-Public Use
  Company Number: GB-MYLANLABS-2014S1002312

PATIENT
  Age: 33 Year
  Sex: Female
  Weight: 95 kg

DRUGS (4)
  1. VENLAFAXINE [Suspect]
     Indication: BIPOLAR DISORDER
     Dates: start: 2010, end: 2014
  2. VENLAFAXINE [Suspect]
     Indication: DEPRESSION
     Dates: start: 2010, end: 2014
  3. SODIUM VALPROATE [Suspect]
     Indication: BIPOLAR DISORDER
     Dates: start: 2011
  4. SODIUM VALPROATE [Suspect]
     Indication: BIPOLAR DISORDER
     Dates: end: 2013

REACTIONS (6)
  - Amenorrhoea [Recovered/Resolved]
  - Anxiety [Recovered/Resolved]
  - Mental disorder [Recovered/Resolved]
  - Malaise [Recovered/Resolved]
  - Syncope [Recovered/Resolved]
  - Weight increased [Recovered/Resolved]
